FAERS Safety Report 24426186 (Version 1)
Quarter: 2024Q4

REPORT INFORMATION
  Report Type: Report from Study
  Country: US (occurrence: US)
  Receive Date: 20241011
  Receipt Date: 20241011
  Transmission Date: 20250115
  Serious: Yes (Hospitalization, Other)
  Sender: RECORDATI
  Company Number: US-ORPHANEU-2024005670

PATIENT

DRUGS (6)
  1. CARBAGLU [Suspect]
     Active Substance: CARGLUMIC ACID
     Indication: Hyperammonaemic crisis
     Dosage: 600 MG, QD AS NEEDED (200 MG DISSOLVE 3 TABLETS (600 MG) IN 2.5 ML OF WATER PER TABLET AND TAKE ONCE
     Dates: start: 20221004
  2. CARBAGLU [Suspect]
     Active Substance: CARGLUMIC ACID
     Dosage: 1000 MG, QD (5 TABLETS ONCE DAILY)
     Route: 048
     Dates: end: 2024
  3. CARBAGLU [Suspect]
     Active Substance: CARGLUMIC ACID
     Dosage: 1000 MILLIGRAM, BID (5 TABLETS TWICE DAILY) AS NEEDED FOR CRISIS
     Route: 048
     Dates: start: 2024
  4. CLINDAMYCIN [Concomitant]
     Active Substance: CLINDAMYCIN
     Indication: Product used for unknown indication
     Dosage: PEDIATRIC
  5. FAMOTIDINE [Concomitant]
     Active Substance: FAMOTIDINE
     Indication: Product used for unknown indication
     Dosage: 40MG/5ML SUSPENSION (RECON)
  6. LEVOCARNITINE [Concomitant]
     Active Substance: LEVOCARNITINE
     Indication: Product used for unknown indication
     Dosage: 100 MG/ML SOLUTION

REACTIONS (5)
  - Hyperammonaemic crisis [Unknown]
  - Influenza [Unknown]
  - Hyperammonaemic crisis [Unknown]
  - Disease recurrence [Recovered/Resolved]
  - Off label use [Recovered/Resolved]

NARRATIVE: CASE EVENT DATE: 20220101
